FAERS Safety Report 8874997 (Version 1)
Quarter: 2012Q4

REPORT INFORMATION
  Report Type: 
  Country: US (occurrence: US)
  Receive Date: 20121029
  Receipt Date: 20121029
  Transmission Date: 20130627
  Serious: Yes (Other)
  Sender: FDA-Public Use
  Company Number: US-PFIZER INC-2012269286

PATIENT
  Age: 95 Year
  Sex: Female

DRUGS (2)
  1. PRISTIQ [Suspect]
     Dosage: 100 mg, 1x/day
     Route: 048
     Dates: end: 201210
  2. PRISTIQ [Suspect]
     Dosage: 50 mg, 1x/day
     Route: 048
     Dates: start: 201210

REACTIONS (1)
  - Hypertension [Recovered/Resolved]
